FAERS Safety Report 14250953 (Version 2)
Quarter: 2017Q4

REPORT INFORMATION
  Report Type: Spontaneous
  Country: JP (occurrence: JP)
  Receive Date: 20171205
  Receipt Date: 20171220
  Transmission Date: 20180321
  Serious: Yes (Hospitalization, Other)
  Sender: FDA-Public Use
  Company Number: JP-BRISTOL-MYERS SQUIBB COMPANY-BMS-2017-108534

PATIENT
  Age: 7 Year
  Sex: Male

DRUGS (2)
  1. METGLUCO [Suspect]
     Active Substance: METFORMIN HYDROCHLORIDE
     Indication: PRODUCT USED FOR UNKNOWN INDICATION
     Route: 048
  2. INSULIN [Concomitant]
     Active Substance: INSULIN NOS
     Indication: PRODUCT USED FOR UNKNOWN INDICATION
     Route: 065

REACTIONS (8)
  - Product use issue [Unknown]
  - Ketosis [Unknown]
  - Adenoidal hypertrophy [Unknown]
  - Respiratory disorder [Unknown]
  - Nephrocalcinosis [Unknown]
  - Hepatic mass [Unknown]
  - Infusion site infection [Unknown]
  - Cholestasis [Unknown]
